FAERS Safety Report 8062908-8 (Version None)
Quarter: 2012Q1

REPORT INFORMATION
  Report Type: 
  Country: None (occurrence: None)
  Receive Date: 20120123
  Receipt Date: 20120123
  Transmission Date: 20120608
  Serious: Yes (Life-Threatening, Other)
  Sender: FDA-Public Use
  Company Number: None

PATIENT
  Age: 57 Year
  Sex: Female
  Weight: 63.502 kg

DRUGS (1)
  1. MACROBID [Suspect]
     Indication: CYSTITIS
     Dosage: TAKE 2 TIMES A DAY
     Route: 048
     Dates: start: 20120116, end: 20120122

REACTIONS (8)
  - NAUSEA [None]
  - MYALGIA [None]
  - HEADACHE [None]
  - INFLUENZA [None]
  - ARTHRALGIA [None]
  - IMPAIRED DRIVING ABILITY [None]
  - SKIN DISCOLOURATION [None]
  - ABDOMINAL PAIN [None]
